FAERS Safety Report 6497910-0 (Version None)
Quarter: 2009Q4

REPORT INFORMATION
  Report Type: 
  Country: None (occurrence: None)
  Receive Date: 20091215
  Receipt Date: 20091204
  Transmission Date: 20100525
  Serious: Yes (Other)
  Sender: FDA-Public Use
  Company Number: GR-PFIZER INC-2009305966

PATIENT
  Age: 84 Year
  Sex: Female
  Weight: 66 kg

DRUGS (11)
  1. LYRICA [Suspect]
     Indication: MULTIPLE MYELOMA
     Dosage: 15 MG, UNK
     Route: 048
     Dates: start: 20070725
  2. LYRICA [Suspect]
     Dosage: 10 MG, UNK
     Dates: start: 20081105
  3. LYRICA [Suspect]
     Dosage: 15 MG, UNK
     Dates: start: 20090413
  4. LYRICA [Suspect]
     Dosage: 25 MG, UNK
     Dates: start: 20090713
  5. REVLIMID [Suspect]
     Indication: MULTIPLE MYELOMA
     Dosage: 15 MG, UNK
     Route: 048
     Dates: start: 20070725, end: 20080728
  6. REVLIMID [Suspect]
     Dosage: 10 MG, UNK
     Route: 048
     Dates: start: 20081105, end: 20090310
  7. REVLIMID [Suspect]
     Dosage: 15 MG, UNK
     Route: 048
     Dates: start: 20090413, end: 20090610
  8. REVLIMID [Suspect]
     Dosage: 25 MG, UNK
     Route: 048
     Dates: start: 20090713
  9. CYMBALTA [Suspect]
  10. DAONIL [Suspect]
     Dosage: 0.5 DF, 1X/DAY
  11. EPREX [Suspect]
     Dosage: 4000 UNK, 1X/WEEKLY

REACTIONS (5)
  - AMNESIA [None]
  - CONFUSIONAL STATE [None]
  - DECREASED APPETITE [None]
  - DISORIENTATION [None]
  - SLEEP DISORDER [None]
